FAERS Safety Report 6330846-4 (Version None)
Quarter: 2009Q3

REPORT INFORMATION
  Report Type: 
  Country: None (occurrence: None)
  Receive Date: 20090827
  Receipt Date: 20090820
  Transmission Date: 20100115
  Serious: Yes (Other)
  Sender: FDA-Public Use
  Company Number: US-JNJFOC-20090807036

PATIENT
  Age: 8 Decade

DRUGS (2)
  1. TAPENTADOL HYDROCHLORIDE [Suspect]
     Indication: PAIN
     Route: 048
  2. PERCOCET [Concomitant]

REACTIONS (2)
  - DISORIENTATION [None]
  - HALLUCINATION [None]
